FAERS Safety Report 15864823 (Version 2)
Quarter: 2019Q1

REPORT INFORMATION
  Report Type: Report from Study
  Country: DE (occurrence: AU)
  Receive Date: 20190124
  Receipt Date: 20190208
  Transmission Date: 20190417
  Serious: Yes (Death, Hospitalization, Other)
  Sender: FDA-Public Use
  Company Number: DE-ACTELION-A-NJ2019-185394

PATIENT
  Sex: Male
  Weight: 80 kg

DRUGS (16)
  1. METFORMIN [Concomitant]
     Active Substance: METFORMIN HYDROCHLORIDE
  2. OXYGEN. [Concomitant]
     Active Substance: OXYGEN
     Dosage: UNK
     Dates: start: 201802
  3. FRUSEMIDE [Concomitant]
     Active Substance: FUROSEMIDE
  4. VENTAVIS [Suspect]
     Active Substance: ILOPROST
     Indication: PRODUCT USED FOR UNKNOWN INDICATION
     Dosage: 5 MCG, Q4HRS
     Route: 055
  5. SLOW K [Concomitant]
     Active Substance: POTASSIUM CHLORIDE
  6. SILDENAFIL. [Concomitant]
     Active Substance: SILDENAFIL
  7. ATORVASTATIN [Concomitant]
     Active Substance: ATORVASTATIN
  8. EMPAGLIFLOZIN [Concomitant]
     Active Substance: EMPAGLIFLOZIN
  9. OPSUMIT [Concomitant]
     Active Substance: MACITENTAN
  10. SALBUTAMOL [Concomitant]
     Active Substance: ALBUTEROL
  11. CLOPIDOGREL [Concomitant]
     Active Substance: CLOPIDOGREL BISULFATE
  12. MAGNESIUM ASPARTATE [Concomitant]
     Active Substance: MAGNESIUM ASPARTATE
  13. AMIODARONE [Concomitant]
     Active Substance: AMIODARONE
  14. ASPIRIN. [Concomitant]
     Active Substance: ASPIRIN
  15. LANSOPRAZOLE. [Concomitant]
     Active Substance: LANSOPRAZOLE
  16. ANORO ELLIPTA [Concomitant]
     Active Substance: UMECLIDINIUM BROMIDE\VILANTEROL TRIFENATATE

REACTIONS (2)
  - Respiratory arrest [Fatal]
  - Syncope [Fatal]
